FAERS Safety Report 23545933 (Version 2)
Quarter: 2024Q3

REPORT INFORMATION
  Report Type: Report from Study
  Country: CL (occurrence: CL)
  Receive Date: 20240220
  Receipt Date: 20240731
  Transmission Date: 20241016
  Serious: Yes (Disabling, Other)
  Sender: ROCHE
  Company Number: CL-ROCHE-3507985

PATIENT
  Age: 52 Year
  Sex: Female
  Weight: 95 kg

DRUGS (6)
  1. OCRELIZUMAB [Suspect]
     Active Substance: OCRELIZUMAB
     Indication: Multiple sclerosis
     Route: 042
     Dates: start: 20240205
  2. DOXEPIN [Concomitant]
     Active Substance: DOXEPIN
     Dosage: DOSE AND FREQUENCY WERE NOT REPORTED
  3. METFORMIN [Concomitant]
     Active Substance: METFORMIN HYDROCHLORIDE
     Indication: Diabetes mellitus
     Dosage: FREQUENCY WAS NOT REPORTED
     Route: 048
     Dates: start: 2022
  4. DUCETEN [Concomitant]
     Indication: Neuralgia
     Dosage: FREQUENCY WAS NOT REPORTED
     Route: 048
     Dates: start: 2022
  5. PREGABALIN [Concomitant]
     Active Substance: PREGABALIN
     Dosage: DOSE AND FREQUENCY WERE NOT REPORTED?TAKE DURING THE NIGHT
     Route: 048
     Dates: start: 202406
  6. CELECOXIB [Concomitant]
     Active Substance: CELECOXIB
     Dosage: DOSE AND FREQUENCY WERE NOT REPORTED?SOS USE
     Route: 048
     Dates: start: 202406

REACTIONS (13)
  - Incorrect dose administered [Unknown]
  - Respiratory tract oedema [Unknown]
  - Choking [Unknown]
  - Erythema [Unknown]
  - Vomiting [Not Recovered/Not Resolved]
  - Dyspnoea [Unknown]
  - Pharyngeal swelling [Unknown]
  - Erythema [Unknown]
  - Nausea [Not Recovered/Not Resolved]
  - Back pain [Not Recovered/Not Resolved]
  - Pain [Not Recovered/Not Resolved]
  - Gait disturbance [Not Recovered/Not Resolved]
  - Weight increased [Unknown]

NARRATIVE: CASE EVENT DATE: 20240205
